FAERS Safety Report 5516871-1 (Version None)
Quarter: 2007Q4

REPORT INFORMATION
  Report Type: 
  Country: None (occurrence: None)
  Receive Date: 20071114
  Receipt Date: 20071105
  Transmission Date: 20080405
  Serious: Yes (Hospitalization)
  Sender: FDA-Public Use
  Company Number: DE-AMGEN-US251392

PATIENT
  Age: 18 Year
  Sex: Female

DRUGS (1)
  1. ENBREL [Suspect]
     Indication: SAPHO SYNDROME
     Route: 058
     Dates: start: 20071001, end: 20071001

REACTIONS (3)
  - CONDITION AGGRAVATED [None]
  - HYPERSENSITIVITY [None]
  - SAPHO SYNDROME [None]
